FAERS Safety Report 5206925-1 (Version None)
Quarter: 2007Q1

REPORT INFORMATION
  Report Type: 
  Country: None (occurrence: None)
  Receive Date: 20070105
  Receipt Date: 20070105
  Transmission Date: 20070707
  Serious: Yes (Hospitalization)
  Sender: FDA-Public Use
  Company Number: None

PATIENT
  Sex: Male
  Weight: 70.31 kg

DRUGS (1)
  1. PHENYTOIN [Suspect]
     Indication: SURGERY
     Dosage: 1 G/ INFUSION IV/ OVER 40-45 MIN
     Route: 042
     Dates: start: 20061002

REACTIONS (2)
  - CARDIAC DISORDER [None]
  - NO THERAPEUTIC RESPONSE [None]
